FAERS Safety Report 4832528-4 (Version None)
Quarter: 2005Q4

REPORT INFORMATION
  Report Type: 
  Country: None (occurrence: None)
  Receive Date: 20051117
  Receipt Date: 20051107
  Transmission Date: 20060501
  Serious: Yes (Hospitalization)
  Sender: FDA-Public Use
  Company Number: 163-20785-05110109

PATIENT
  Age: 70 Year
  Sex: Female

DRUGS (1)
  1. THALOMID [Suspect]
     Indication: MULTIPLE MYELOMA
     Dosage: 150 MG, DAILY; ORAL
     Route: 048
     Dates: start: 20040812, end: 20050101

REACTIONS (3)
  - FALL [None]
  - FULL BLOOD COUNT DECREASED [None]
  - SEPTIC SHOCK [None]
